FAERS Safety Report 14892602 (Version 1)
Quarter: 2018Q2

REPORT INFORMATION
  Report Type: Spontaneous
  Country: US (occurrence: US)
  Receive Date: 20180514
  Receipt Date: 20180514
  Transmission Date: 20180711
  Serious: No
  Sender: FDA-Public Use
  Company Number: US-GLAXOSMITHKLINE-US2018081693

PATIENT
  Sex: Male

DRUGS (9)
  1. SYMBICORT [Concomitant]
     Active Substance: BUDESONIDE\FORMOTEROL FUMARATE DIHYDRATE
  2. PREDNISONE. [Concomitant]
     Active Substance: PREDNISONE
  3. SIMVASTATIN. [Concomitant]
     Active Substance: SIMVASTATIN
  4. INCRUSE ELLIPTA [Concomitant]
     Active Substance: UMECLIDINIUM BROMIDE
  5. DALIRESP [Concomitant]
     Active Substance: ROFLUMILAST
  6. TRELEGY ELLIPTA [Suspect]
     Active Substance: FLUTICASONE FUROATE\UMECLIDINIUM BROMIDE\VILANTEROL TRIFENATATE
     Indication: EMPHYSEMA
     Dosage: 1 PUFF(S), 1D
     Route: 055
     Dates: start: 201804, end: 20180508
  7. ELIQUIS [Concomitant]
     Active Substance: APIXABAN
  8. DILTIAZEM. [Concomitant]
     Active Substance: DILTIAZEM
  9. MUCINEX [Concomitant]
     Active Substance: GUAIFENESIN

REACTIONS (4)
  - Insomnia [Unknown]
  - Dyspnoea [Recovered/Resolved]
  - Middle insomnia [Unknown]
  - Drug ineffective [Unknown]
